FAERS Safety Report 5083411-3 (Version None)
Quarter: 2006Q3

REPORT INFORMATION
  Report Type: 
  Country: None (occurrence: None)
  Receive Date: 20060818
  Receipt Date: 20060727
  Transmission Date: 20061208
  Serious: Yes (Hospitalization)
  Sender: FDA-Public Use
  Company Number: PHEH2006US09700

PATIENT
  Sex: Female

DRUGS (1)
  1. ZELNORM [Suspect]
     Indication: CONSTIPATION

REACTIONS (3)
  - COLITIS ISCHAEMIC [None]
  - OCCULT BLOOD POSITIVE [None]
  - RECTAL HAEMORRHAGE [None]
